FAERS Safety Report 4972365-3 (Version None)
Quarter: 2006Q1

REPORT INFORMATION
  Report Type: 
  Country: None (occurrence: None)
  Receive Date: 20060216
  Receipt Date: 20051228
  Transmission Date: 20060701
  Serious: No
  Sender: FDA-Public Use
  Company Number: TPA2005A01377

PATIENT
  Sex: Female

DRUGS (1)
  1. ROZEREM [Suspect]
     Indication: INSOMNIA
     Dosage: QHS, PER ORAL
     Route: 048

REACTIONS (2)
  - DRUG INEFFECTIVE [None]
  - MIDDLE INSOMNIA [None]
